FAERS Safety Report 22356113 (Version 5)
Quarter: 2024Q1

REPORT INFORMATION
  Report Type: Report from Study
  Country: CO (occurrence: CO)
  Receive Date: 20230523
  Receipt Date: 20240101
  Transmission Date: 20240410
  Serious: Yes (Other)
  Sender: FDA-Public Use
  Company Number: CO-002147023-NVSC2023CO079932

PATIENT
  Sex: Male
  Weight: 87 kg

DRUGS (4)
  1. KESIMPTA [Suspect]
     Active Substance: OFATUMUMAB
     Indication: Relapsing-remitting multiple sclerosis
     Dosage: 20 MG, QMO (START DATE SIX MONTH AGO)
     Route: 058
     Dates: start: 20221212
  2. EMTRICITABINE [Concomitant]
     Active Substance: EMTRICITABINE
     Indication: HIV infection
     Dosage: UNK, Q24H (START DATE NINE YEARS  AGO
     Route: 048
  3. TENOFOVIR [Concomitant]
     Active Substance: TENOFOVIR
     Indication: Hepatitis B
     Dosage: UNK, Q24H (START DATE NINE YEARS AGO)
     Route: 048
  4. PREGABALIN [Concomitant]
     Active Substance: PREGABALIN
     Indication: Neuritis
     Dosage: 150 MG, Q12H (START DATE REPORTED AS TWO NINE YEARS)
     Route: 048

REACTIONS (9)
  - Neuropathy peripheral [Unknown]
  - Malaise [Unknown]
  - Balance disorder [Unknown]
  - Vision blurred [Unknown]
  - Acne [Recovered/Resolved]
  - Anal sphincter atony [Not Recovered/Not Resolved]
  - Dizziness [Unknown]
  - Insomnia [Unknown]
  - Weight decreased [Unknown]
